FAERS Safety Report 16752434 (Version 10)
Quarter: 2020Q4

REPORT INFORMATION
  Report Type: Spontaneous
  Country: JP (occurrence: JP)
  Receive Date: 20190828
  Receipt Date: 20201218
  Transmission Date: 20210113
  Serious: Yes (Hospitalization, Other)
  Sender: FDA-Public Use
  Company Number: JP-GLAXOSMITHKLINE-JP2019JPN151481

PATIENT
  Age: 69 Year
  Sex: Female
  Weight: 49 kg

DRUGS (10)
  1. DEPAKENE [Concomitant]
     Active Substance: VALPROIC ACID
     Indication: EPILEPSY
     Dosage: 400 MG, BID AFTER BREAKFAST AND DINNER
     Route: 048
     Dates: start: 20170905
  2. LIXIANA TABLETS [Concomitant]
     Active Substance: EDOXABAN TOSYLATE
     Indication: VENOUS THROMBOSIS LIMB
     Dosage: 30 MG, QD AFTER DINNER
     Route: 048
     Dates: start: 20170831
  3. LAMICTAL [Suspect]
     Active Substance: LAMOTRIGINE
     Dosage: 25 MG, QD BEFORE BEDTIME
     Route: 048
     Dates: start: 20180612, end: 20180712
  4. ROCEPHIN [Suspect]
     Active Substance: CEFTRIAXONE SODIUM
     Dosage: UNK
     Route: 041
     Dates: start: 20180710, end: 20180711
  5. GENINAX [Concomitant]
     Active Substance: GARENOXACIN MESYLATE
     Dosage: UNK
     Dates: start: 20180711
  6. CELECOX TABLETS [Concomitant]
     Indication: PAIN
     Dosage: 100 MG, BID
     Route: 048
     Dates: start: 20170905, end: 20180715
  7. LANDSEN [Concomitant]
     Active Substance: CLONAZEPAM
     Indication: EPILEPSY
     Dosage: 0.5 MG, BID AFTER BREAKFAST AND DINNER
     Route: 048
     Dates: start: 20170905
  8. HIRNAMIN TABLET [Concomitant]
     Dosage: 10 MG, QD BEFORE DINNER
  9. LAMICTAL [Suspect]
     Active Substance: LAMOTRIGINE
     Indication: BIPOLAR DISORDER
     Dosage: 25 MG, QOD
     Route: 048
     Dates: start: 20180514, end: 20180611
  10. LIORESAL [Concomitant]
     Active Substance: BACLOFEN
     Indication: PARALYSIS
     Dosage: 5 MG, TID AFTER EVERY MEAL
     Route: 048
     Dates: start: 20170905, end: 20180715

REACTIONS (12)
  - Oral mucosa erosion [Recovered/Resolved]
  - Product use issue [Unknown]
  - Rash maculo-papular [Recovering/Resolving]
  - Erythema [Recovering/Resolving]
  - Rash [Recovering/Resolving]
  - Treatment noncompliance [Unknown]
  - Drug reaction with eosinophilia and systemic symptoms [Recovering/Resolving]
  - Pyrexia [Recovering/Resolving]
  - Lymphadenopathy [Recovering/Resolving]
  - Productive cough [Recovered/Resolved]
  - Chills [Recovered/Resolved]
  - Oral mucosal erythema [Recovered/Resolved]

NARRATIVE: CASE EVENT DATE: 20180514
